FAERS Safety Report 9128789 (Version 2)
Quarter: 2013Q2

REPORT INFORMATION
  Report Type: Report from Study
  Country: DE (occurrence: DE)
  Receive Date: 20130125
  Receipt Date: 20130610
  Transmission Date: 20140414
  Serious: No
  Sender: FDA-Public Use
  Company Number: DE-UCBSA-076546

PATIENT
  Sex: Female

DRUGS (3)
  1. VIMPAT [Suspect]
     Indication: EPILEPSY
     Dosage: DAILY DOSE: 100 MG
     Dates: start: 20090827
  2. VIMPAT [Suspect]
     Indication: EPILEPSY
     Dosage: DAILY DOSE 400 MG
  3. LEVETIRACETAM [Concomitant]
     Indication: EPILEPSY
     Dosage: DAILY DOSE: 3000 MG

REACTIONS (1)
  - Brain operation [Recovered/Resolved]
